FAERS Safety Report 26160733 (Version 1)
Quarter: 2025Q4

REPORT INFORMATION
  Report Type: Spontaneous
  Country: US (occurrence: None)
  Receive Date: 20251216
  Receipt Date: 20251216
  Transmission Date: 20260118
  Serious: Yes (Other)
  Sender: ENDO
  Company Number: US-ENDO USA, INC.-2025-002201

PATIENT

DRUGS (1)
  1. XIAFLEX [Suspect]
     Active Substance: COLLAGENASE CLOSTRIDIUM HISTOLYTICUM
     Indication: Peyronie^s disease
     Dosage: UNK UNKNOWN, SINGLE (INJECTION 1, UNKNOWN CYCLE)
     Dates: start: 20251021, end: 20251021

REACTIONS (2)
  - Syncope [Unknown]
  - Road traffic accident [Unknown]

NARRATIVE: CASE EVENT DATE: 20251021
